FAERS Safety Report 6498335-4 (Version None)
Quarter: 2009Q4

REPORT INFORMATION
  Report Type: 
  Country: None (occurrence: None)
  Receive Date: 20091215
  Receipt Date: 20091207
  Transmission Date: 20100525
  Serious: Yes (Other)
  Sender: FDA-Public Use
  Company Number: GB-TEVA-217302ISR

PATIENT
  Age: 51 Year
  Sex: Male

DRUGS (2)
  1. METHOTREXATE [Suspect]
     Indication: DERMATITIS PSORIASIFORM
     Dosage: 15MG/WEEK
     Dates: start: 20070501
  2. METHOTREXATE [Suspect]
     Dosage: 20 MG/WEEK

REACTIONS (1)
  - PEYRONIE'S DISEASE [None]
